FAERS Safety Report 9219727 (Version 2)
Quarter: 2013Q2

REPORT INFORMATION
  Report Type: Spontaneous
  Country: US (occurrence: US)
  Receive Date: 20130409
  Receipt Date: 20130409
  Transmission Date: 20140414
  Serious: Yes (Hospitalization)
  Sender: FDA-Public Use
  Company Number: US-BAYER-2013-033988

PATIENT
  Age: 65 Year
  Sex: Male
  Weight: 144.7 kg

DRUGS (9)
  1. XARELTO [Suspect]
     Indication: ATRIAL FIBRILLATION
     Dosage: 20 MG, QD
     Route: 048
     Dates: start: 20120906, end: 201303
  2. XARELTO [Suspect]
     Indication: CEREBROVASCULAR ACCIDENT PROPHYLAXIS
  3. ACETYLSALICYLIC ACID [Suspect]
     Indication: PRODUCT USED FOR UNKNOWN INDICATION
     Dosage: 325 MG, UNK
     Route: 065
  4. CRESTOR [Concomitant]
     Dosage: UNK
     Route: 048
  5. FUROSEMIDE [Concomitant]
     Dosage: UNK
     Route: 048
  6. POTASSIUM [Concomitant]
     Dosage: UNK
     Route: 048
  7. NEXIUM [Concomitant]
     Dosage: UNK
     Route: 048
  8. DIOVAN [Concomitant]
     Dosage: UNK
     Route: 048
  9. AMLODIPINE [Concomitant]
     Dosage: UNK
     Route: 048

REACTIONS (3)
  - Subdural haematoma [Recovering/Resolving]
  - Product quality issue [None]
  - Spontaneous haematoma [None]
